FAERS Safety Report 13158977 (Version 1)
Quarter: 2017Q1

REPORT INFORMATION
  Report Type: Spontaneous
  Country: ES (occurrence: ES)
  Receive Date: 20170127
  Receipt Date: 20170127
  Transmission Date: 20170428
  Serious: Yes (Other)
  Sender: FDA-Public Use
  Company Number: ES-GLAXOSMITHKLINE-ES2017010851

PATIENT
  Age: 80 Year
  Sex: Male

DRUGS (18)
  1. FUROSEMIDE. [Concomitant]
     Active Substance: FUROSEMIDE
     Dosage: 2-1-0; IN AFTERNOON
  2. LORMETAZEPAM [Concomitant]
     Active Substance: LORMETAZEPAM
     Dosage: IN NIGHT;0-0-1
  3. ALLOPURINOL. [Concomitant]
     Active Substance: ALLOPURINOL
     Dosage: IN DAY; 0-1-0
  4. MOXONIDINE [Concomitant]
     Active Substance: MOXONIDINE
     Dosage: IN THE MORNING;1-0-0
  5. CEFUROXIME. [Suspect]
     Active Substance: CEFUROXIME
     Indication: CYSTITIS
  6. PARACETAMOL [Concomitant]
     Active Substance: ACETAMINOPHEN
     Dosage: 1-1-1
  7. INSULIN GLARGINE [Concomitant]
     Active Substance: INSULIN GLARGINE
     Dosage: 23-0- 0
  8. ACETYLSALICYLIC ACID [Concomitant]
     Active Substance: ASPIRIN
     Dosage: IN DAY;0-1-0
  9. ATORVASTATIN [Concomitant]
     Active Substance: ATORVASTATIN
     Dosage: IN NIGHT; 0-0-1
  10. FUROSEMIDE. [Concomitant]
     Active Substance: FUROSEMIDE
     Dosage: 2-1-0; IN MORNING
  11. DOXAZOSIN [Concomitant]
     Active Substance: DOXAZOSIN\DOXAZOSIN MESYLATE
     Dosage: IN MORNING; 1-0-0
  12. AMLODIPINE [Concomitant]
     Active Substance: AMLODIPINE BESYLATE
     Dosage: IN MORNING AND EVENING; 1-1-0
  13. BISOPROLOL [Concomitant]
     Active Substance: BISOPROLOL
     Dosage: IN THE MORNING;1-0-0
  14. CALCIUM [Concomitant]
     Active Substance: CALCIUM
     Dosage: IN THE MORNING; 1-0-0
  15. REPAGLINIDE. [Concomitant]
     Active Substance: REPAGLINIDE
     Dosage: IN MORNING, AFTERNOON AND NIGHT; 1-1-1
  16. OMEPRAZOLE. [Concomitant]
     Active Substance: OMEPRAZOLE
     Dosage: IN NIGHT; 0-0-1
  17. IRON [Concomitant]
     Active Substance: IRON
     Dosage: IN THE MORNING;1-0-0
  18. LOSARTAN. [Concomitant]
     Active Substance: LOSARTAN
     Dosage: IN THE MORNING;1-0-0

REACTIONS (1)
  - Hypersensitivity vasculitis [Unknown]
